FAERS Safety Report 8909338 (Version 1)
Quarter: 2012Q4

REPORT INFORMATION
  Report Type: 
  Country: US (occurrence: US)
  Receive Date: 20121115
  Receipt Date: 20121115
  Transmission Date: 20130627
  Serious: Yes (Other)
  Sender: FDA-Public Use
  Company Number: US-ROCHE-790771

PATIENT
  Sex: Female
  Weight: 50.85 kg

DRUGS (3)
  1. ACCUTANE [Suspect]
     Indication: ACNE
     Route: 065
     Dates: start: 1996, end: 1997
  2. ACCUTANE [Suspect]
     Route: 065
     Dates: start: 1995, end: 1996
  3. ORTHO TRI CYCLEN [Concomitant]
     Indication: CONTRACEPTION

REACTIONS (5)
  - Crohn^s disease [Unknown]
  - Cholangitis sclerosing [Unknown]
  - Inflammatory bowel disease [Unknown]
  - Emotional distress [Unknown]
  - Anaemia [Unknown]
